FAERS Safety Report 9916731 (Version 2)
Quarter: 2014Q1

REPORT INFORMATION
  Report Type: Report from Study
  Country: JP (occurrence: JP)
  Receive Date: 20140221
  Receipt Date: 20140322
  Transmission Date: 20141002
  Serious: Yes (Death, Hospitalization)
  Sender: FDA-Public Use
  Company Number: JP-AMGEN-JPNCT2014012673

PATIENT
  Age: 73 Year
  Sex: Male
  Weight: 64 kg

DRUGS (31)
  1. ROMIPLOSTIM - KHK [Suspect]
     Indication: IMMUNE THROMBOCYTOPENIC PURPURA
     Dosage: 1 MUG/KG, QD
     Route: 058
     Dates: start: 20130820, end: 20130924
  2. PREDNISOLONE [Concomitant]
     Indication: IMMUNE THROMBOCYTOPENIC PURPURA
     Dosage: 10 MG, UNK
     Route: 048
     Dates: start: 20130806, end: 20130923
  3. PREDNISOLONE [Concomitant]
     Dosage: 10 MG, UNK
     Route: 048
     Dates: start: 20130806, end: 20130812
  4. PREDNISOLONE [Concomitant]
     Dosage: 7.5 MG, UNK
     Route: 048
     Dates: start: 20130813, end: 20130819
  5. PREDNISOLONE [Concomitant]
     Dosage: 5 MG, UNK
     Route: 048
     Dates: start: 20130820, end: 20130825
  6. PREDNISOLONE [Concomitant]
     Dosage: 10 MG, UNK
     Route: 048
     Dates: start: 20130903, end: 20130923
  7. HYDROCORTONE                       /00028603/ [Concomitant]
     Indication: IMMUNE THROMBOCYTOPENIC PURPURA
     Dosage: 150 MG, UNK
     Route: 065
     Dates: start: 20130826, end: 20131002
  8. HYDROCORTONE                       /00028603/ [Concomitant]
     Dosage: 150 MG, UNK
     Route: 065
     Dates: start: 20130826, end: 20130828
  9. HYDROCORTONE                       /00028603/ [Concomitant]
     Dosage: 75 MG, UNK
     Route: 065
     Dates: start: 20130829, end: 20130902
  10. HYDROCORTONE                       /00028603/ [Concomitant]
     Dosage: 100 MG, UNK
     Route: 065
     Dates: start: 20130924, end: 20130929
  11. HYDROCORTONE                       /00028603/ [Concomitant]
     Dosage: 300 MG, UNK
     Route: 065
     Dates: start: 20130930, end: 20131002
  12. TAKEPRON [Concomitant]
     Indication: PROPHYLAXIS
     Dosage: UNK
     Route: 048
  13. NEXIUM                             /01479302/ [Concomitant]
     Indication: PROPHYLAXIS
     Dosage: UNK
     Route: 048
  14. MINOPEN [Concomitant]
     Indication: ENDOCARDITIS
     Dosage: UNK
     Route: 041
  15. POLARAMINE [Concomitant]
     Indication: DRUG HYPERSENSITIVITY
     Dosage: UNK
     Route: 065
  16. HUMULIN R [Concomitant]
     Indication: TYPE 2 DIABETES MELLITUS
     Dosage: UNK
     Route: 065
  17. RECOMODULIN [Concomitant]
     Indication: DISSEMINATED INTRAVASCULAR COAGULATION
     Dosage: UNK
     Route: 065
  18. NEUART [Concomitant]
     Indication: DISSEMINATED INTRAVASCULAR COAGULATION
     Dosage: UNK
     Route: 065
  19. CRAVIT [Concomitant]
     Indication: PNEUMONIA
     Dosage: UNK
     Route: 065
  20. FINIBAX [Concomitant]
     Indication: PNEUMONIA
     Dosage: UNK
     Route: 065
  21. ALBUMIN [Concomitant]
     Indication: HYPOALBUMINAEMIA
     Dosage: UNK
     Route: 065
  22. NISSEKI POLYGLOBIN N [Concomitant]
     Indication: HYPOGAMMAGLOBULINAEMIA
     Dosage: UNK
     Route: 065
  23. ZYVOX [Concomitant]
     Indication: ENDOCARDITIS
     Dosage: UNK
     Route: 065
  24. SLONNON [Concomitant]
     Indication: HEPARIN-INDUCED THROMBOCYTOPENIA
     Dosage: UNK
     Route: 065
  25. PRECEDEX [Concomitant]
     Indication: ENDOTRACHEAL INTUBATION
     Dosage: UNK
     Route: 065
  26. KAKODIN [Concomitant]
     Indication: ENDOCARDITIS
     Dosage: UNK
     Route: 065
  27. SINGULAIR [Concomitant]
     Indication: ASTHMA
     Dosage: UNK
     Route: 048
  28. THEODUR [Concomitant]
     Indication: ASTHMA
     Dosage: UNK
     Route: 048
  29. PULMICORT [Concomitant]
     Indication: ASTHMA
     Dosage: UNK
     Route: 055
  30. SOLDACTONE [Concomitant]
     Indication: CARDIAC FAILURE
     Dosage: UNK
     Route: 065
  31. FUNGUARD [Concomitant]
     Indication: CANDIDA SEPSIS
     Dosage: UNK
     Route: 065

REACTIONS (3)
  - Axillary vein thrombosis [Not Recovered/Not Resolved]
  - Candida sepsis [Fatal]
  - Atrial fibrillation [Unknown]
